FAERS Safety Report 7538817-7 (Version None)
Quarter: 2011Q2

REPORT INFORMATION
  Report Type: 
  Country: None (occurrence: None)
  Receive Date: 20110610
  Receipt Date: 20091120
  Transmission Date: 20111010
  Serious: Yes (Death, Other)
  Sender: FDA-Public Use
  Company Number: US-BAYER-200940002NA

PATIENT
  Age: 61 Year
  Sex: Male
  Weight: 102 kg

DRUGS (10)
  1. HEPARIN [Concomitant]
     Dosage: 33,000 UNITS AND 10,000 UNITS
     Route: 042
     Dates: start: 20050608, end: 20050608
  2. INSULIN [Concomitant]
     Dosage: LANTUS-6 UNITS EVERY AM /40 UNITS EVERY PM
     Route: 058
  3. ALTACE [Concomitant]
  4. LIPITOR [Concomitant]
     Route: 048
  5. ACETYLSALICYLIC ACID SRT [Concomitant]
     Route: 048
  6. NITROGLYCERIN [Concomitant]
     Dosage: TITRATED
     Route: 042
     Dates: start: 20050608, end: 20050608
  7. COREG [Concomitant]
     Route: 048
  8. LOPRESSOR [Concomitant]
  9. TRASYLOL [Suspect]
     Indication: CORONARY ARTERY BYPASS
     Dosage: 200 ML FOLLOWED BY 50 ML/HOUR
     Route: 042
     Dates: start: 20050608, end: 20050608
  10. INSULIN [Concomitant]
     Dosage: UNK
     Route: 042
     Dates: start: 20050608, end: 20050608

REACTIONS (7)
  - RENAL FAILURE [None]
  - PAIN [None]
  - MULTI-ORGAN FAILURE [None]
  - RENAL FAILURE ACUTE [None]
  - INJURY [None]
  - DEATH [None]
  - UNEVALUABLE EVENT [None]
